FAERS Safety Report 18154438 (Version 1)
Quarter: 2020Q3

REPORT INFORMATION
  Report Type: Spontaneous
  Country: DE (occurrence: DE)
  Receive Date: 20200817
  Receipt Date: 20200817
  Transmission Date: 20201103
  Serious: Yes (Hospitalization)
  Sender: FDA-Public Use
  Company Number: DE-TEVA-2020-DE-1813934

PATIENT
  Age: 65 Year
  Sex: Male

DRUGS (14)
  1. TORASEMID [Suspect]
     Active Substance: TORSEMIDE
     Dosage: 10 MG, 2?1?0?0
     Route: 048
  2. XIPAMID [Suspect]
     Active Substance: XIPAMIDE
     Dosage: 10 MILLIGRAM DAILY;  1?0?0?0
     Route: 048
  3. APIXABAN [Concomitant]
     Active Substance: APIXABAN
     Dosage: 10 MILLIGRAM DAILY; 1?0?1?0
     Route: 048
  4. AMLODIPIN [Suspect]
     Active Substance: AMLODIPINE BESYLATE
     Dosage: 10 MILLIGRAM DAILY;  1?0?1?0
     Route: 048
  5. ATORVASTATIN [Concomitant]
     Active Substance: ATORVASTATIN
     Dosage: 2 DOSAGE FORMS DAILY; 20 MG, 0?0?2?0
     Route: 048
  6. METOPROLOL. [Concomitant]
     Active Substance: METOPROLOL
     Dosage: 95 MG, 1?0?0.5?0
     Route: 048
  7. PANTOPRAZOL [Concomitant]
     Active Substance: PANTOPRAZOLE SODIUM
     Dosage: 40 MILLIGRAM DAILY; 1?0?0?0
     Route: 048
  8. CLOPIDOGREL [Concomitant]
     Active Substance: CLOPIDOGREL BISULFATE
     Dosage: 75 MILLIGRAM DAILY; 1?0?0?0
     Route: 048
  9. LACOSAMID [Concomitant]
     Active Substance: LACOSAMIDE
     Dosage: 4 DOSAGE FORMS DAILY; 50 MG, 2?0?2?0
     Route: 048
  10. ESCITALOPRAM [Concomitant]
     Active Substance: ESCITALOPRAM OXALATE
     Dosage: 10 MILLIGRAM DAILY; 1?0?0?0
     Route: 048
  11. EZETIMIB [Concomitant]
     Active Substance: EZETIMIBE
     Dosage: 10 MILLIGRAM DAILY;  0?0?1?0
     Route: 048
  12. RAMIPRIL. [Suspect]
     Active Substance: RAMIPRIL
     Dosage: 10 MILLIGRAM DAILY; 1?0?1?0
     Route: 048
  13. EPLERENON [Concomitant]
     Active Substance: EPLERENONE
     Dosage: 25 MILLIGRAM DAILY;  1?0?0?0
     Route: 048
  14. ERYFER 100MG [Concomitant]
     Dosage: 100 MILLIGRAM DAILY; 1?0?0?0
     Route: 048

REACTIONS (8)
  - Product prescribing error [Unknown]
  - Dizziness [Unknown]
  - Condition aggravated [Unknown]
  - Hypotension [Unknown]
  - Acute kidney injury [Unknown]
  - Thirst [Unknown]
  - Dehydration [Unknown]
  - Malaise [Unknown]
